FAERS Safety Report 5758406-4 (Version None)
Quarter: 2008Q2

REPORT INFORMATION
  Report Type: 
  Country: None (occurrence: None)
  Receive Date: 20080603
  Receipt Date: 20080603
  Transmission Date: 20081010
  Serious: Yes (Life-Threatening, Hospitalization)
  Sender: FDA-Public Use
  Company Number: None

PATIENT
  Age: 27 Year
  Sex: Female
  Weight: 72.5 kg

DRUGS (1)
  1. LAMOTRIGINE [Suspect]
     Indication: CONVULSION
     Dosage: 50MG DAILY PO
     Route: 048

REACTIONS (4)
  - AGRANULOCYTOSIS [None]
  - BONE MARROW FAILURE [None]
  - NEOPLASM MALIGNANT [None]
  - PANCYTOPENIA [None]
